FAERS Safety Report 4557581-7 (Version None)
Quarter: 2005Q1

REPORT INFORMATION
  Report Type: 
  Country: None (occurrence: None)
  Receive Date: 20050103
  Receipt Date: 20040831
  Transmission Date: 20050727
  Serious: Yes (Other)
  Sender: FDA-Public Use
  Company Number: 2004UW18346

PATIENT
  Age: 76 Year
  Sex: Female
  Weight: 96.6162 kg

DRUGS (9)
  1. CRESTOR [Suspect]
     Indication: BLOOD CHOLESTEROL INCREASED
     Dosage: 10 MG PO
     Route: 048
  2. DIGOXIN [Concomitant]
  3. SOTALOL HCL [Concomitant]
  4. THYROID TAB [Concomitant]
  5. COUMADIN [Concomitant]
  6. POTASSIUM CHLORIDE [Concomitant]
  7. FUROSEMIDE [Concomitant]
  8. NEXIUM [Concomitant]
  9. CALCIUM GLUCONATE [Concomitant]

REACTIONS (1)
  - FUNGAL INFECTION [None]
